FAERS Safety Report 14013400 (Version 1)
Quarter: 2017Q3

REPORT INFORMATION
  Report Type: Spontaneous
  Country: GB (occurrence: GB)
  Receive Date: 20170926
  Receipt Date: 20170926
  Transmission Date: 20171128
  Serious: Yes (Other)
  Sender: FDA-Public Use
  Company Number: PHHY2017GB137937

PATIENT
  Age: 74 Year
  Sex: Male

DRUGS (2)
  1. ETANERCEPT [Suspect]
     Active Substance: ETANERCEPT
     Indication: RHEUMATOID ARTHRITIS
     Dosage: 50 MG, QW
     Route: 065
  2. PREDNISOLONE. [Concomitant]
     Active Substance: PREDNISOLONE
     Indication: RHEUMATOID ARTHRITIS
     Dosage: 7 MG, QD
     Route: 065

REACTIONS (5)
  - Arthritis bacterial [Recovering/Resolving]
  - Sensory loss [Recovering/Resolving]
  - Hyperreflexia [Recovering/Resolving]
  - Staphylococcal infection [Recovering/Resolving]
  - Extradural abscess [Recovering/Resolving]
